FAERS Safety Report 11203038 (Version 1)
Quarter: 2015Q2

REPORT INFORMATION
  Report Type: Report from Study
  Country: FR (occurrence: FR)
  Receive Date: 20150619
  Receipt Date: 20150619
  Transmission Date: 20150821
  Serious: Yes (Hospitalization)
  Sender: FDA-Public Use
  Company Number: FR-GLAXOSMITHKLINE-FR2015GSK085345

PATIENT

DRUGS (7)
  1. KARDEGIC [Concomitant]
     Active Substance: ASPIRIN LYSINE
  2. PLAVIX [Concomitant]
     Active Substance: CLOPIDOGREL BISULFATE
  3. ATACAND [Concomitant]
     Active Substance: CANDESARTAN CILEXETIL
  4. SECTRAL [Concomitant]
     Active Substance: ACEBUTOLOL HYDROCHLORIDE
  5. OMEGA-3-ACID ETHYL ESTERS. [Suspect]
     Active Substance: OMEGA-3-ACID ETHYL ESTERS
     Indication: ISCHAEMIC HEART DISEASE PROPHYLAXIS
     Dosage: UNK
     Dates: start: 20070617, end: 20070711
  6. ELISOR [Concomitant]
     Active Substance: PRAVASTATIN SODIUM
  7. IKOREL [Concomitant]
     Active Substance: NICORANDIL

REACTIONS (1)
  - Cataract [Unknown]

NARRATIVE: CASE EVENT DATE: 20110126
